FAERS Safety Report 5609348-6 (Version None)
Quarter: 2008Q1

REPORT INFORMATION
  Report Type: 
  Country: None (occurrence: None)
  Receive Date: 20080131
  Receipt Date: 20080122
  Transmission Date: 20080703
  Serious: Yes (Death)
  Sender: FDA-Public Use
  Company Number: US-KINGPHARMUSA00001-K200800133

PATIENT

DRUGS (3)
  1. AVINZA [Suspect]
     Indication: DRUG ABUSE
     Route: 048
  2. METHAMPHETAMINE HYDROCHLORIDE [Suspect]
     Indication: DRUG ABUSE
  3. UNKNOWN CHEMICAL [Suspect]
     Indication: DRUG ABUSE

REACTIONS (2)
  - CARDIO-RESPIRATORY ARREST [None]
  - DRUG ABUSE [None]
